FAERS Safety Report 4587511-3 (Version None)
Quarter: 2005Q1

REPORT INFORMATION
  Report Type: 
  Country: None (occurrence: None)
  Receive Date: 20050215
  Receipt Date: 20050203
  Transmission Date: 20050727
  Serious: Yes (Other)
  Sender: FDA-Public Use
  Company Number: 2005024994

PATIENT
  Sex: Female
  Weight: 81.6475 kg

DRUGS (6)
  1. VISINE TEARS (GLYCERIN, POLYETHYLENE GLYCOL, HYDROXYPROPYLMETHYLCELLUL [Suspect]
     Indication: DRY EYE
     Dosage: ^COUPLE OF DROPS PER EYE^  1-2X / DAY, OPHTHALMIC
     Route: 047
  2. MURINE (BERBERINE HYDROCHLORIDE, BORIC ACID, HYDRASTINE HYDROCHLORIDE) [Suspect]
     Dosage: UNSPECIFIED, OPHTHALMIC
  3. DESLORATADINE (DESLORATADINE) [Concomitant]
  4. CO-DIOVEN (HYDROCHLOROTHIAZIDE, VALSARTAN) [Concomitant]
  5. ESOMEPRAZOLE (ESOMEPRAZOLE) [Concomitant]
  6. OEMPRAZOLE (OMEPRAZOLE) [Concomitant]

REACTIONS (1)
  - CATARACT OPERATION [None]
